FAERS Safety Report 5775168-5 (Version None)
Quarter: 2008Q2

REPORT INFORMATION
  Report Type: 
  Country: None (occurrence: None)
  Receive Date: 20080616
  Receipt Date: 20080616
  Transmission Date: 20081010
  Serious: Yes (Other)
  Sender: FDA-Public Use
  Company Number: None

PATIENT
  Age: 78 Year
  Sex: Female
  Weight: 79.3795 kg

DRUGS (1)
  1. FACTIVE [Suspect]
     Indication: BRONCHITIS
     Dosage: ONE TABLET DAILY
     Dates: start: 20080601, end: 20080603

REACTIONS (6)
  - CONDITION AGGRAVATED [None]
  - COUGH [None]
  - MUSCLE SPASMS [None]
  - NAUSEA [None]
  - RETCHING [None]
  - VOMITING [None]
